FAERS Safety Report 8066908-3 (Version None)
Quarter: 2012Q1

REPORT INFORMATION
  Report Type: 
  Country: None (occurrence: None)
  Receive Date: 20120124
  Receipt Date: 20120119
  Transmission Date: 20120608
  Serious: Yes (Hospitalization, Other)
  Sender: FDA-Public Use
  Company Number: PHHY2011JP97051

PATIENT
  Age: 26 Year
  Sex: Female

DRUGS (3)
  1. NORTRIPTYLINE HCL [Suspect]
     Route: 048
  2. DIPHENHYDRAMINE HCL [Suspect]
     Route: 048
  3. AMOXAPINE [Suspect]
     Route: 048

REACTIONS (10)
  - METABOLIC ACIDOSIS [None]
  - COMA SCALE ABNORMAL [None]
  - TACHYPNOEA [None]
  - CLONIC CONVULSION [None]
  - DRUG LEVEL INCREASED [None]
  - SOMNOLENCE [None]
  - SUPRAVENTRICULAR TACHYCARDIA [None]
  - INTENTIONAL OVERDOSE [None]
  - VENTRICULAR FIBRILLATION [None]
  - CIRCULATORY COLLAPSE [None]
